FAERS Safety Report 12379326 (Version 2)
Quarter: 2016Q3

REPORT INFORMATION
  Report Type: Spontaneous
  Country: US (occurrence: US)
  Receive Date: 20160517
  Receipt Date: 20160901
  Transmission Date: 20161109
  Serious: No
  Sender: FDA-Public Use
  Company Number: US-RELYPSA-RLY2016000383

PATIENT
  Sex: Male

DRUGS (25)
  1. ATORVASTATIN CALCIUM. [Concomitant]
     Active Substance: ATORVASTATIN CALCIUM
  2. SYMBICORT [Concomitant]
     Active Substance: BUDESONIDE\FORMOTEROL FUMARATE DIHYDRATE
  3. AMBIEN [Concomitant]
     Active Substance: ZOLPIDEM TARTRATE
  4. VENTOLIN HFA [Concomitant]
     Active Substance: ALBUTEROL SULFATE
  5. ALLOPURINOL. [Concomitant]
     Active Substance: ALLOPURINOL
  6. CYCLOBENZAPRINE HCL [Concomitant]
     Active Substance: CYCLOBENZAPRINE HYDROCHLORIDE
  7. FUROSEMIDE. [Concomitant]
     Active Substance: FUROSEMIDE
  8. HUMALOG MIX50/50 [Concomitant]
     Active Substance: INSULIN LISPRO
  9. LANCETS [Concomitant]
     Active Substance: DEVICE
  10. OMEPRAZOLE                         /00661202/ [Concomitant]
  11. VITAMIN D2 [Concomitant]
     Active Substance: ERGOCALCIFEROL
  12. AMITRIPTYLINE HCL [Concomitant]
     Active Substance: AMITRIPTYLINE
  13. COZAAR [Concomitant]
     Active Substance: LOSARTAN POTASSIUM
  14. GABAPENTIN. [Concomitant]
     Active Substance: GABAPENTIN
  15. WARFARIN SODIUM. [Concomitant]
     Active Substance: WARFARIN SODIUM
  16. CITALOPRAM HYDROBROMIDE. [Concomitant]
     Active Substance: CITALOPRAM HYDROBROMIDE
  17. NOVOFINE [Concomitant]
     Active Substance: INSULIN NOS
  18. METOPROLOL SUCCINATE. [Concomitant]
     Active Substance: METOPROLOL SUCCINATE
  19. TAMSULOSIN HCL [Concomitant]
     Active Substance: TAMSULOSIN
  20. VITAMIN C                          /00008004/ [Concomitant]
  21. VELTASSA [Suspect]
     Active Substance: PATIROMER
     Indication: HYPERKALAEMIA
     Dosage: 8.4 G, QD
     Route: 048
     Dates: start: 20160216
  22. AMOXICILLIN. [Concomitant]
     Active Substance: AMOXICILLIN
  23. TUDORZA PRESSAIR [Concomitant]
     Active Substance: ACLIDINIUM BROMIDE
  24. BD INSULIN SYR ULTRAFINE II [Concomitant]
  25. PARICALCITOL. [Concomitant]
     Active Substance: PARICALCITOL

REACTIONS (1)
  - Urinary tract infection [Unknown]
